FAERS Safety Report 6139205-0 (Version None)
Quarter: 2009Q2

REPORT INFORMATION
  Report Type: 
  Country: None (occurrence: None)
  Receive Date: 20090401
  Receipt Date: 20090325
  Transmission Date: 20091009
  Serious: Yes (Hospitalization)
  Sender: FDA-Public Use
  Company Number: US-JNJFOC-20090306933

PATIENT
  Sex: Female
  Weight: 58.06 kg

DRUGS (4)
  1. DURAGESIC-100 [Suspect]
     Route: 062
  2. DURAGESIC-100 [Suspect]
     Route: 062
  3. DURAGESIC-100 [Suspect]
     Indication: MIGRAINE
     Route: 062
  4. EFFEXOR [Suspect]
     Indication: DEPRESSION
     Route: 048

REACTIONS (5)
  - BIPOLAR DISORDER [None]
  - INSOMNIA [None]
  - MIGRAINE [None]
  - UTERINE CYST [None]
  - VOMITING [None]
